FAERS Safety Report 11184939 (Version 4)
Quarter: 2016Q4

REPORT INFORMATION
  Report Type: Report from Study
  Country: CA (occurrence: CA)
  Receive Date: 20150612
  Receipt Date: 20161028
  Transmission Date: 20170206
  Serious: Yes (Other)
  Sender: FDA-Public Use
  Company Number: CA-MERCK-1501CAN000285

PATIENT
  Age: 54 Year
  Sex: Female
  Weight: 56 kg

DRUGS (16)
  1. ACTEMRA [Suspect]
     Active Substance: TOCILIZUMAB
     Dosage: 496 MG, EVERY 4 WEEKS
     Route: 042
  2. VENTOLIN [Concomitant]
     Active Substance: ALBUTEROL SULFATE
     Dosage: UNK
     Route: 065
  3. ZANTAC [Concomitant]
     Active Substance: RANITIDINE HYDROCHLORIDE
     Dosage: 300 MG, QD
     Route: 065
  4. ACTEMRA [Suspect]
     Active Substance: TOCILIZUMAB
     Dosage: 420 MG, EVERY 4 WEEKS
     Route: 042
  5. DESLORATADINE. [Concomitant]
     Active Substance: DESLORATADINE
     Dosage: UNK
     Route: 048
  6. METHOTREXATE. [Suspect]
     Active Substance: METHOTREXATE
     Indication: PRODUCT USED FOR UNKNOWN INDICATION
     Dosage: UNK
     Route: 065
  7. LIPITOR [Suspect]
     Active Substance: ATORVASTATIN CALCIUM
     Indication: HYPERCHOLESTEROLAEMIA
     Dosage: UNK
     Route: 065
  8. ROSUVASTATIN CALCIUM. [Suspect]
     Active Substance: ROSUVASTATIN CALCIUM
     Indication: BLOOD CHOLESTEROL INCREASED
     Dosage: 5 MG, UNK
     Route: 065
  9. ZOCOR [Suspect]
     Active Substance: SIMVASTATIN
     Indication: BLOOD CHOLESTEROL INCREASED
     Dosage: UNK
     Route: 065
     Dates: start: 20141223
  10. ACTEMRA [Suspect]
     Active Substance: TOCILIZUMAB
     Indication: RHEUMATOID ARTHRITIS
     Dosage: 244 MG, EVERY 4 WEEKS
     Route: 042
     Dates: start: 20110812
  11. ACTEMRA [Suspect]
     Active Substance: TOCILIZUMAB
     Dosage: 448 MG, EVERY 4 WEEKS
     Route: 042
  12. ACTEMRA [Suspect]
     Active Substance: TOCILIZUMAB
     Dosage: 366 MG, EVERY 4 WEEKS
     Route: 042
  13. SULFASALAZINE. [Suspect]
     Active Substance: SULFASALAZINE
     Indication: PRODUCT USED FOR UNKNOWN INDICATION
     Dosage: UNK
     Route: 065
  14. PAROXETINE HYDROCHLORIDE. [Concomitant]
     Active Substance: PAROXETINE HYDROCHLORIDE
     Dosage: UNK
  15. RANITIDINE. [Concomitant]
     Active Substance: RANITIDINE
     Dosage: UNK
  16. LEFLUNOMIDE. [Concomitant]
     Active Substance: LEFLUNOMIDE
     Dosage: UNK

REACTIONS (37)
  - Weight increased [Not Recovered/Not Resolved]
  - Dyslipidaemia [Unknown]
  - Endocrine ophthalmopathy [Unknown]
  - Pain [Unknown]
  - Laceration [Not Recovered/Not Resolved]
  - Hypersensitivity [Not Recovered/Not Resolved]
  - Haematochezia [Unknown]
  - Vomiting [Not Recovered/Not Resolved]
  - Arthropathy [Unknown]
  - Diarrhoea [Unknown]
  - Hypercholesterolaemia [Unknown]
  - Myalgia [Unknown]
  - Foot deformity [Unknown]
  - Mean cell haemoglobin increased [Unknown]
  - Abdominal pain upper [Not Recovered/Not Resolved]
  - Eyelid oedema [Unknown]
  - Psoriasis [Unknown]
  - Synovitis [Unknown]
  - Arthrodesis [Not Recovered/Not Resolved]
  - Nausea [Not Recovered/Not Resolved]
  - Abdominal pain [Unknown]
  - Bunion operation [Unknown]
  - Flatulence [Unknown]
  - Joint swelling [Unknown]
  - Toxic shock syndrome [Unknown]
  - Blood cholesterol increased [Not Recovered/Not Resolved]
  - Contusion [Not Recovered/Not Resolved]
  - Pain in extremity [Not Recovered/Not Resolved]
  - Peripheral swelling [Not Recovered/Not Resolved]
  - Weight decreased [Not Recovered/Not Resolved]
  - Eye infection [Not Recovered/Not Resolved]
  - Abasia [Unknown]
  - Arthrodesis [Unknown]
  - Osteoarthritis [Unknown]
  - Synovial cyst [Unknown]
  - Eyelid disorder [Unknown]
  - Ill-defined disorder [Unknown]

NARRATIVE: CASE EVENT DATE: 201412
